FAERS Safety Report 9956324 (Version 1)
Quarter: 2014Q1

REPORT INFORMATION
  Report Type: Spontaneous
  Country: US (occurrence: US)
  Receive Date: 20140304
  Receipt Date: 20140304
  Transmission Date: 20141002
  Serious: Yes (Other)
  Sender: FDA-Public Use
  Company Number: US-ASTRAZENECA-2014SE12825

PATIENT
  Age: 57 Year
  Sex: Female
  Weight: 57.6 kg

DRUGS (7)
  1. PRILOSEC [Suspect]
     Indication: GASTROOESOPHAGEAL REFLUX DISEASE
     Route: 048
     Dates: start: 2004
  2. RHINOCORT AQUA [Suspect]
     Indication: RHINITIS
     Dosage: 2 SPRAYS PER NOSTRIL DAILY
     Route: 045
     Dates: start: 20140220, end: 20140224
  3. RHINOCORT AQUA [Suspect]
     Indication: MULTIPLE ALLERGIES
     Dosage: 2 SPRAYS PER NOSTRIL DAILY
     Route: 045
     Dates: start: 20140220, end: 20140224
  4. VENTOLIN [Concomitant]
     Indication: ASTHMA
     Dosage: 2 SPRAYS PRN
     Route: 055
     Dates: start: 201401
  5. LORATIDINE [Concomitant]
     Indication: MULTIPLE ALLERGIES
     Route: 048
     Dates: start: 2013
  6. ULTRAM [Concomitant]
     Indication: BACK PAIN
     Dosage: PRN
     Route: 048
  7. ADVIL [Concomitant]
     Indication: BACK PAIN
     Dosage: PRN

REACTIONS (4)
  - Nasal septum deviation [Unknown]
  - Cough [Recovering/Resolving]
  - Vomiting [Recovered/Resolved]
  - Wheezing [Recovered/Resolved]
